FAERS Safety Report 9241802 (Version 1)
Quarter: 2013Q2

REPORT INFORMATION
  Report Type: Spontaneous
  Country: US (occurrence: US)
  Receive Date: 20130419
  Receipt Date: 20130419
  Transmission Date: 20140414
  Serious: No
  Sender: FDA-Public Use
  Company Number: US-B.I. PHARMACEUTICALS,INC./RIDGEFIELD-2013-BI-08062BP

PATIENT
  Age: 75 Year
  Sex: Male

DRUGS (3)
  1. TRADJENTA [Suspect]
     Indication: BLOOD GLUCOSE ABNORMAL
     Dosage: 5 MG
     Route: 048
     Dates: start: 20130320
  2. TRADJENTA [Suspect]
     Indication: TYPE 2 DIABETES MELLITUS
  3. LEVEMIR [Concomitant]
     Indication: DIABETES MELLITUS
     Dosage: 54 U
     Route: 058
     Dates: start: 1959

REACTIONS (1)
  - Blood glucose increased [Not Recovered/Not Resolved]
